FAERS Safety Report 9686320 (Version 1)
Quarter: 2013Q4

REPORT INFORMATION
  Report Type: Spontaneous
  Country: DE (occurrence: None)
  Receive Date: 20131108
  Receipt Date: 20131108
  Transmission Date: 20140711
  Serious: Yes (Other)
  Sender: FDA-Public Use
  Company Number: 2013315062

PATIENT
  Age: 27 Year
  Sex: Female
  Weight: 53 kg

DRUGS (2)
  1. DALTEPARIN SODIUM [Suspect]
     Route: 058
  2. DALTEPARIN SODIUM [Suspect]
     Route: 058

REACTIONS (5)
  - Cerebral ischaemia [None]
  - Paraesthesia [None]
  - Exposure during pregnancy [None]
  - Labour induction [None]
  - Pre-eclampsia [None]
